FAERS Safety Report 15629608 (Version 3)
Quarter: 2019Q2

REPORT INFORMATION
  Report Type: Spontaneous
  Country: JP (occurrence: JP)
  Receive Date: 20181117
  Receipt Date: 20190418
  Transmission Date: 20190711
  Serious: Yes (Life-Threatening, Other)
  Sender: FDA-Public Use
  Company Number: JP-ROCHE-2207895

PATIENT
  Age: 43 Year
  Sex: Female
  Weight: 51 kg

DRUGS (6)
  1. RIVOTRIL [Concomitant]
     Active Substance: CLONAZEPAM
     Dosage: DOSAGE IS UNCERTAIN.
     Route: 065
     Dates: start: 201504
  2. TRYPTANOL [Concomitant]
     Active Substance: AMITRIPTYLINE
     Dosage: DOSAGE IS UNCERTAIN.
     Route: 065
     Dates: start: 201803
  3. CALONAL [Concomitant]
     Active Substance: ACETAMINOPHEN
     Dosage: DOSAGE IS UNCERTAIN.
     Route: 065
  4. TECENTRIQ [Suspect]
     Active Substance: ATEZOLIZUMAB
     Indication: LUNG ADENOCARCINOMA
     Dosage: DOSAGE IS UNCERTAIN.
     Route: 041
     Dates: start: 20181005, end: 20181005
  5. LYRICA [Concomitant]
     Active Substance: PREGABALIN
     Dosage: DOSAGE IS UNCERTAIN.
     Route: 065
     Dates: start: 201803
  6. LOXOPROFEN SODIUM HYDRATE [Concomitant]
     Active Substance: LOXOPROFEN SODIUM DIHYDRATE
     Dosage: DOSAGE IS UNCERTAIN.
     Route: 065
     Dates: start: 201608

REACTIONS (6)
  - Oropharyngeal pain [Unknown]
  - Meningitis [Recovering/Resolving]
  - Lymphadenopathy [Unknown]
  - Brain oedema [Unknown]
  - Encephalitis [Recovering/Resolving]
  - Nervous system disorder [Not Recovered/Not Resolved]

NARRATIVE: CASE EVENT DATE: 20181017
